FAERS Safety Report 9246602 (Version 2)
Quarter: 2013Q2

REPORT INFORMATION
  Report Type: Spontaneous
  Country: AU (occurrence: AU)
  Receive Date: 20130422
  Receipt Date: 20130429
  Transmission Date: 20140414
  Serious: Yes (Hospitalization, Other)
  Sender: FDA-Public Use
  Company Number: AU-B.I. PHARMACEUTICALS,INC./RIDGEFIELD-2013-AU-00463AU

PATIENT
  Age: 73 Year
  Sex: Male
  Weight: 78.8 kg

DRUGS (8)
  1. PRADAXA [Suspect]
     Indication: ATRIAL FIBRILLATION
     Dosage: 300 MG
     Dates: start: 201110, end: 20130407
  2. AMIODARONE [Concomitant]
     Dosage: 200 MG
  3. CRESTOR [Concomitant]
     Dosage: 40 MG
  4. EFEXOR [Concomitant]
     Dosage: 150 MG
  5. NEXIUM [Concomitant]
     Dosage: 20 MG
  6. FISH OIL [Concomitant]
  7. MAGNESIUM [Concomitant]
  8. VITAMIN E [Concomitant]

REACTIONS (7)
  - Atrial fibrillation [Unknown]
  - Atrial fibrillation [Unknown]
  - Ventricular tachycardia [Not Recovered/Not Resolved]
  - Ischaemic cardiomyopathy [Unknown]
  - Left ventricular dysfunction [Unknown]
  - Intracardiac thrombus [Not Recovered/Not Resolved]
  - Drug ineffective [Unknown]
